FAERS Safety Report 9077888 (Version 1)
Quarter: 2013Q1

REPORT INFORMATION
  Report Type: Report from Study
  Country: US (occurrence: US)
  Receive Date: 20130130
  Receipt Date: 20130130
  Transmission Date: 20140127
  Serious: No
  Sender: FDA-Public Use
  Company Number: US-ABBOTT-12P-163-0941343-00

PATIENT
  Age: 11 None
  Sex: Male

DRUGS (6)
  1. HUMIRA [Suspect]
     Dates: start: 20120523, end: 20120523
  2. HUMIRA [Suspect]
     Dosage: 2 WEEKS LATER
  3. HUMIRA [Suspect]
  4. METHOTREXATE [Concomitant]
  5. FOLIC ACID [Concomitant]
  6. ZYRTEC [Concomitant]
     Indication: SEASONAL ALLERGY

REACTIONS (6)
  - Vitamin D decreased [Not Recovered/Not Resolved]
  - Injection site bruising [Not Recovered/Not Resolved]
  - Injection site erythema [Not Recovered/Not Resolved]
  - Injection site pain [Not Recovered/Not Resolved]
  - Injection site erythema [Not Recovered/Not Resolved]
  - Injection site warmth [Not Recovered/Not Resolved]
